FAERS Safety Report 8778244 (Version 1)
Quarter: 2012Q4

REPORT INFORMATION
  Report Type: Report from Study
  Country: JP (occurrence: JP)
  Receive Date: 20120911
  Receipt Date: 20120911
  Transmission Date: 20130627
  Serious: Yes (Hospitalization, Other)
  Sender: FDA-Public Use
  Company Number: JP-009507513-1207JPN001462

PATIENT

DRUGS (17)
  1. RIKKUNSHI-TO [Concomitant]
     Indication: PROPHYLAXIS
     Dosage: 7.5 g, qd
     Route: 048
     Dates: start: 20120514, end: 20120723
  2. PEGINTRON [Suspect]
     Indication: HEPATITIS C
     Dosage: 100 Microgram, qw
     Route: 058
     Dates: start: 20120514, end: 20120717
  3. REBETOL [Suspect]
     Indication: HEPATITIS C
     Dosage: 800 mg, qd
     Route: 048
     Dates: start: 20120514, end: 20120610
  4. REBETOL [Suspect]
     Dosage: 600mg/2 day
     Route: 048
     Dates: start: 20120611, end: 20120611
  5. REBETOL [Suspect]
     Dosage: 800mg/2 days
     Route: 048
     Dates: start: 20120612, end: 20120612
  6. REBETOL [Suspect]
     Dosage: 600 mg, qd
     Route: 048
     Dates: start: 20120613, end: 20120617
  7. REBETOL [Suspect]
     Dosage: 400mg/2 days
     Route: 048
     Dates: start: 20120618, end: 20120623
  8. REBETOL [Suspect]
     Dosage: 600mg/2 days
     Route: 048
     Dates: start: 20120619, end: 20120624
  9. REBETOL [Suspect]
     Dosage: 400 mg, qd
     Route: 048
     Dates: start: 20120625, end: 20120701
  10. REBETOL [Suspect]
     Dosage: 400mg/2day
     Route: 048
     Dates: start: 20120702, end: 20120708
  11. REBETOL [Suspect]
     Dosage: 200mg/2day
     Route: 048
     Dates: start: 20120703, end: 20120708
  12. REBETOL [Suspect]
     Dosage: 400 mg, qd
     Route: 048
     Dates: start: 20120717, end: 20120723
  13. TELAVIC [Suspect]
     Indication: HEPATITIS C
     Dosage: 2250 mg,, qd
     Route: 048
     Dates: start: 20120514, end: 20120612
  14. TELAVIC [Suspect]
     Dosage: 1500 mg, qd
     Route: 048
     Dates: start: 20120613, end: 20120617
  15. TELAVIC [Suspect]
     Dosage: 750 mg, qd
     Route: 048
     Dates: start: 20120618, end: 20120708
  16. TELAVIC [Suspect]
     Dosage: 1500 mg, qd
     Route: 048
     Dates: start: 20120717, end: 20120723
  17. ALLEGRA [Concomitant]
     Indication: PROPHYLAXIS
     Dosage: 60 mg, bid
     Route: 048
     Dates: start: 20120514, end: 20120723

REACTIONS (5)
  - Hyperuricaemia [Recovered/Resolved]
  - Haemoglobin decreased [Not Recovered/Not Resolved]
  - Blood creatinine increased [Recovering/Resolving]
  - Diarrhoea [Recovering/Resolving]
  - Retinopathy [Not Recovered/Not Resolved]
